FAERS Safety Report 5689803-3 (Version None)
Quarter: 2008Q1

REPORT INFORMATION
  Report Type: 
  Country: None (occurrence: None)
  Receive Date: 20080327
  Receipt Date: 20080303
  Transmission Date: 20080703
  Serious: Yes (Other)
  Sender: FDA-Public Use
  Company Number: GB-DEXPHARM-20080174

PATIENT
  Age: 68 Year
  Sex: Female

DRUGS (3)
  1. DICLOFENAC SODIUM [Suspect]
     Dosage: ^3/1 DAYS^ [50 MG MILLIGRAM(S)] ORAL
     Route: 048
     Dates: start: 20070718, end: 20070921
  2. FLUCLOXACILLIN [Concomitant]
  3. PARACETAMOL [Concomitant]

REACTIONS (2)
  - HYPERTENSION [None]
  - NEPHROTIC SYNDROME [None]
